FAERS Safety Report 20904584 (Version 3)
Quarter: 2023Q1

REPORT INFORMATION
  Report Type: Other
  Country: DE (occurrence: None)
  Receive Date: 20220602
  Receipt Date: 20230322
  Transmission Date: 20230418
  Serious: Yes (Hospitalization)
  Sender: FDA-Public Use
  Company Number: DE-ROCHE-2839327

PATIENT
  Age: 42 Year
  Sex: Female

DRUGS (6)
  1. OCREVUS [Suspect]
     Active Substance: OCRELIZUMAB
     Indication: Relapsing-remitting multiple sclerosis
     Route: 042
     Dates: start: 20180702
  2. OCREVUS [Suspect]
     Active Substance: OCRELIZUMAB
     Dosage: SUBSEQUENT DOSE 600 MG 1 IN 175 DAYS
     Route: 042
     Dates: start: 20180702
  3. DALFAMPRIDINE [Concomitant]
     Active Substance: DALFAMPRIDINE
  4. ENALAPRIL [Concomitant]
     Active Substance: ENALAPRIL
  5. PREGABALIN [Concomitant]
     Active Substance: PREGABALIN
  6. PREGABALIN [Concomitant]
     Active Substance: PREGABALIN

REACTIONS (7)
  - COVID-19 [Recovered/Resolved]
  - Menstrual disorder [Recovered/Resolved]
  - Cardiovascular disorder [Recovered/Resolved]
  - Fall [Unknown]
  - Cystitis [Not Recovered/Not Resolved]
  - Fatigue [Not Recovered/Not Resolved]
  - Neurodermatitis [Recovered/Resolved]

NARRATIVE: CASE EVENT DATE: 20210526
